FAERS Safety Report 8456854-5 (Version None)
Quarter: 2012Q2

REPORT INFORMATION
  Report Type: 
  Country: None (occurrence: None)
  Receive Date: 20120621
  Receipt Date: 20120608
  Transmission Date: 20120825
  Serious: Yes (Hospitalization)
  Sender: FDA-Public Use
  Company Number: FR-JNJFOC-20120606524

PATIENT
  Sex: Female

DRUGS (14)
  1. AN UNKNOWN MEDICATION [Concomitant]
     Indication: ANXIETY
     Route: 048
     Dates: start: 20090101
  2. RISPERDAL [Suspect]
     Dosage: 0.5MG TWICE A DAY (MORNING AND EVENING).
     Route: 048
  3. XANAX [Concomitant]
     Indication: ANXIETY
     Route: 048
  4. ACETAMINOPHEN [Concomitant]
     Indication: PAIN
     Route: 048
     Dates: start: 20090101
  5. DUPHALAC [Concomitant]
     Indication: PRODUCT USED FOR UNKNOWN INDICATION
     Route: 048
     Dates: start: 20090101
  6. LIORESAL [Concomitant]
     Indication: PRODUCT USED FOR UNKNOWN INDICATION
     Dosage: 1 IN THE MORNING AND 1 IN THE EVENING
     Route: 048
     Dates: start: 20090101
  7. ORBENIN CAP [Concomitant]
     Indication: PRODUCT USED FOR UNKNOWN INDICATION
     Route: 048
     Dates: start: 20120309
  8. RENUTRYL [Concomitant]
     Indication: PRODUCT USED FOR UNKNOWN INDICATION
     Route: 048
     Dates: start: 20090101
  9. ALPHAGAN [Concomitant]
     Indication: GLAUCOMA
     Route: 047
     Dates: start: 20090101
  10. RISPERDAL [Suspect]
     Indication: DEMENTIA
     Route: 048
     Dates: start: 20090101
  11. POTASSIUM CHLORIDE [Concomitant]
     Indication: PRODUCT USED FOR UNKNOWN INDICATION
     Route: 048
  12. MOTILIUM [Suspect]
     Indication: PRODUCT USED FOR UNKNOWN INDICATION
     Route: 048
     Dates: start: 20090101
  13. ALUMINUM HYDROXIDE AND MAGNESIUM TRISILICATE [Concomitant]
     Indication: PRODUCT USED FOR UNKNOWN INDICATION
     Route: 048
     Dates: start: 20090101
  14. VITAMIN D [Concomitant]
     Indication: PRODUCT USED FOR UNKNOWN INDICATION
     Route: 048
     Dates: start: 20090101

REACTIONS (4)
  - FOREIGN BODY ASPIRATION [None]
  - PNEUMONIA ASPIRATION [None]
  - ECHOLALIA [None]
  - RESPIRATORY DISTRESS [None]
